FAERS Safety Report 10105833 (Version 1)
Quarter: 2014Q2

REPORT INFORMATION
  Report Type: Spontaneous
  Country: GB (occurrence: GB)
  Receive Date: 20140424
  Receipt Date: 20140424
  Transmission Date: 20141212
  Serious: Yes (Congenital Anomaly)
  Sender: FDA-Public Use
  Company Number: PHHY2014GB046755

PATIENT
  Sex: 0
  Weight: 2.86 kg

DRUGS (1)
  1. CITALOPRAM [Suspect]
     Dosage: (MATERNAL DOSE 20 MG)
     Route: 064

REACTIONS (3)
  - Genitalia external ambiguous [Unknown]
  - Anal atresia [Unknown]
  - Foetal exposure during pregnancy [Unknown]
